FAERS Safety Report 9922867 (Version 1)
Quarter: 2014Q1

REPORT INFORMATION
  Report Type: Spontaneous
  Country: US (occurrence: US)
  Receive Date: 20140225
  Receipt Date: 20140225
  Transmission Date: 20141002
  Serious: No
  Sender: FDA-Public Use
  Company Number: US-ABBVIE-13P-163-1175087-00

PATIENT
  Sex: Male
  Weight: 72.64 kg

DRUGS (4)
  1. ANDROGEL [Suspect]
     Indication: BLOOD TESTOSTERONE DECREASED
     Route: 061
     Dates: start: 201308, end: 20131102
  2. ANDROGEL [Suspect]
     Dates: start: 20131102
  3. BENICAR [Concomitant]
     Indication: HYPERTENSION
  4. NEXIUM [Concomitant]
     Indication: DYSPEPSIA

REACTIONS (4)
  - Myalgia [Not Recovered/Not Resolved]
  - Pain [Not Recovered/Not Resolved]
  - Penis disorder [Not Recovered/Not Resolved]
  - Blood testosterone decreased [Unknown]
